FAERS Safety Report 9763275 (Version 1)
Quarter: 2013Q4

REPORT INFORMATION
  Report Type: Spontaneous
  Country: US (occurrence: US)
  Receive Date: 20131216
  Receipt Date: 20131216
  Transmission Date: 20140711
  Serious: No
  Sender: FDA-Public Use
  Company Number: US-BIOGENIDEC-2013BI104791

PATIENT
  Age: 44 Year
  Sex: Female

DRUGS (13)
  1. TECFIDERA [Suspect]
     Indication: MULTIPLE SCLEROSIS
     Route: 048
     Dates: start: 201310
  2. TECFIDERA [Suspect]
     Indication: MULTIPLE SCLEROSIS
     Route: 048
     Dates: start: 201310
  3. ASPIRIN [Concomitant]
     Route: 048
  4. BISOPROLOL FUMARATE [Concomitant]
  5. VYVANSE [Concomitant]
  6. EXALGO [Concomitant]
  7. DILANTIN [Concomitant]
  8. LITHIUM CARBONATE [Concomitant]
  9. GEODON [Concomitant]
  10. PERCOCET [Concomitant]
  11. CYANOCOBALAMIN [Concomitant]
  12. PROTONIX [Concomitant]
  13. XANAX [Concomitant]

REACTIONS (2)
  - Flushing [Recovered/Resolved]
  - Abdominal discomfort [Recovered/Resolved]
